FAERS Safety Report 21203643 (Version 3)
Quarter: 2022Q3

REPORT INFORMATION
  Report Type: Report from Study
  Country: CA (occurrence: CA)
  Receive Date: 20220811
  Receipt Date: 20220927
  Transmission Date: 20221027
  Serious: Yes (Hospitalization)
  Sender: FDA-Public Use
  Company Number: CA-HLS-202201479

PATIENT
  Age: 55 Year
  Sex: Female

DRUGS (4)
  1. CLOZARIL [Suspect]
     Active Substance: CLOZAPINE
     Indication: Psychotic disorder
     Route: 048
     Dates: start: 20220726
  2. CLOZARIL [Suspect]
     Active Substance: CLOZAPINE
     Indication: Dementia
     Route: 048
     Dates: start: 20220726
  3. CLOZARIL [Suspect]
     Active Substance: CLOZAPINE
     Indication: Psychotic disorder
     Route: 048
     Dates: start: 20220802, end: 20220808
  4. CLOZARIL [Suspect]
     Active Substance: CLOZAPINE
     Indication: Dementia
     Route: 048
     Dates: start: 20220802, end: 20220808

REACTIONS (4)
  - Neutrophil count decreased [Unknown]
  - Hepatic enzyme increased [Not Recovered/Not Resolved]
  - Off label use [Unknown]
  - White blood cell count decreased [Unknown]

NARRATIVE: CASE EVENT DATE: 20220802
